FAERS Safety Report 24543677 (Version 1)
Quarter: 2024Q4

REPORT INFORMATION
  Report Type: Spontaneous
  Country: DE (occurrence: DE)
  Receive Date: 20241024
  Receipt Date: 20241024
  Transmission Date: 20250114
  Serious: Yes (Other)
  Sender: TEVA
  Company Number: None

PATIENT
  Age: 8 Year
  Sex: Male
  Weight: 30 kg

DRUGS (1)
  1. METHYLPHENIDATE [Suspect]
     Active Substance: METHYLPHENIDATE
     Indication: Attention deficit hyperactivity disorder
     Dosage: 1X T?GLICH; 27 MG
     Route: 048
     Dates: start: 20240709, end: 20240930

REACTIONS (5)
  - Hallucination, tactile [Unknown]
  - Animal phobia [Unknown]
  - Initial insomnia [Unknown]
  - Formication [Unknown]
  - Fear of animals [Unknown]

NARRATIVE: CASE EVENT DATE: 20240909
